FAERS Safety Report 6771096-7 (Version None)
Quarter: 2010Q2

REPORT INFORMATION
  Report Type: 
  Country: None (occurrence: None)
  Receive Date: 20100616
  Receipt Date: 20100607
  Transmission Date: 20101027
  Serious: Yes (Hospitalization)
  Sender: FDA-Public Use
  Company Number: DE-JNJFOC-20100603192

PATIENT
  Age: 40 Year
  Sex: Male

DRUGS (7)
  1. RISPERDAL [Suspect]
     Indication: DRUG USE FOR UNKNOWN INDICATION
     Route: 048
     Dates: end: 20100222
  2. CLOZAPINE [Suspect]
     Indication: DRUG USE FOR UNKNOWN INDICATION
     Route: 048
     Dates: end: 20100223
  3. LORAZEPAM [Concomitant]
     Route: 048
     Dates: end: 20100228
  4. LORAZEPAM [Concomitant]
     Route: 048
     Dates: end: 20100228
  5. LORAZEPAM [Concomitant]
     Route: 048
     Dates: end: 20100228
  6. LACTULOSE [Concomitant]
     Route: 048
     Dates: end: 20100224
  7. CLEXANE [Concomitant]
     Route: 058
     Dates: start: 20100220, end: 20100228

REACTIONS (5)
  - ANXIETY [None]
  - CONSTIPATION [None]
  - DELUSION [None]
  - DIET REFUSAL [None]
  - NEUROLEPTIC MALIGNANT SYNDROME [None]
